FAERS Safety Report 7153220-X (Version None)
Quarter: 2010Q4

REPORT INFORMATION
  Report Type: 
  Country: None (occurrence: None)
  Receive Date: 20101213
  Receipt Date: 20101202
  Transmission Date: 20110411
  Serious: Yes (Hospitalization, Other)
  Sender: FDA-Public Use
  Company Number: US-ROCHE-724546

PATIENT
  Sex: Female
  Weight: 61.2 kg

DRUGS (1)
  1. ACCUTANE [Suspect]
     Indication: ACNE
     Route: 065
     Dates: start: 19900101, end: 19910101

REACTIONS (4)
  - COLITIS ULCERATIVE [None]
  - DEPRESSION [None]
  - INFERTILITY [None]
  - ORAL HERPES [None]
